FAERS Safety Report 14109587 (Version 2)
Quarter: 2018Q1

REPORT INFORMATION
  Report Type: Spontaneous
  Country: JP (occurrence: JP)
  Receive Date: 20171020
  Receipt Date: 20180302
  Transmission Date: 20180508
  Serious: Yes (Hospitalization, Other)
  Sender: FDA-Public Use
  Company Number: JP-ALVOGEN-2017-ALVOGEN-093793

PATIENT
  Age: 24 Year
  Sex: Male

DRUGS (1)
  1. DOXORUBICIN [Suspect]
     Active Substance: DOXORUBICIN
     Indication: ACUTE MYELOID LEUKAEMIA

REACTIONS (4)
  - Intracardiac thrombus [Unknown]
  - Splenic infarction [Unknown]
  - Cardiomyopathy [Unknown]
  - Renal infarct [Unknown]
